FAERS Safety Report 7685760-9 (Version None)
Quarter: 2011Q3

REPORT INFORMATION
  Report Type: 
  Country: None (occurrence: None)
  Receive Date: 20110815
  Receipt Date: 20110815
  Transmission Date: 20111222
  Serious: Yes (Life-Threatening, Hospitalization)
  Sender: FDA-Public Use
  Company Number: None

PATIENT
  Age: 93 Year
  Sex: Female
  Weight: 55.791 kg

DRUGS (1)
  1. PROMETHAZINE [Suspect]
     Indication: VOMITING
     Dosage: 1 TABLET
     Route: 048
     Dates: start: 20110720, end: 20110721

REACTIONS (2)
  - FALL [None]
  - HIP FRACTURE [None]
